FAERS Safety Report 21739838 (Version 1)
Quarter: 2022Q4

REPORT INFORMATION
  Report Type: Spontaneous
  Country: US (occurrence: None)
  Receive Date: 20221215
  Receipt Date: 20221215
  Transmission Date: 20230112
  Serious: Yes (Disabling)
  Sender: FDA-Public Use
  Company Number: None

PATIENT
  Age: 27 Year
  Sex: Female

DRUGS (5)
  1. AIMOVIG (ERENUMAB) [Suspect]
     Active Substance: ERENUMAB
     Dates: start: 20190626, end: 20190626
  2. LINZESS [Suspect]
     Active Substance: LINACLOTIDE
  3. AMITIZA [Suspect]
     Active Substance: LUBIPROSTONE
  4. ZELNORM [Suspect]
     Active Substance: TEGASEROD MALEATE
  5. MOTEGRITY [Suspect]
     Active Substance: PRUCALOPRIDE SUCCINATE

REACTIONS (4)
  - Nausea [None]
  - Vomiting [None]
  - Diarrhoea [None]
  - Irritable bowel syndrome [None]

NARRATIVE: CASE EVENT DATE: 20190626
